FAERS Safety Report 9209493 (Version 1)
Quarter: 2013Q1

REPORT INFORMATION
  Report Type: Spontaneous
  Country: US (occurrence: None)
  Receive Date: 20120809
  Receipt Date: 20120809
  Transmission Date: 20140127
  Serious: Yes (Other)
  Sender: FDA-Public Use
  Company Number: 2011P1009118

PATIENT
  Sex: Female

DRUGS (5)
  1. LISINOPRIL [Suspect]
     Dates: start: 20110701, end: 20110719
  2. LIPITOR [Concomitant]
  3. SYNTHYROID [Concomitant]
  4. LUMIGAN [Concomitant]
  5. COMBIGAN [Concomitant]

REACTIONS (4)
  - Pyrexia [None]
  - Chills [None]
  - Tremor [None]
  - Myalgia [None]
